FAERS Safety Report 15313977 (Version 1)
Quarter: 2018Q3

REPORT INFORMATION
  Report Type: Spontaneous
  Country: SE (occurrence: SE)
  Receive Date: 20180824
  Receipt Date: 20180824
  Transmission Date: 20181010
  Serious: Yes (Other)
  Sender: FDA-Public Use
  Company Number: SE-TEVA-2018-SE-946135

PATIENT
  Age: 24 Year
  Sex: Female

DRUGS (1)
  1. ESCITALOPRAM TEVA [Suspect]
     Active Substance: ESCITALOPRAM OXALATE
     Route: 048

REACTIONS (6)
  - Malaise [Recovered/Resolved]
  - Tunnel vision [Recovered/Resolved]
  - Tremor [Recovered/Resolved]
  - Headache [Recovered/Resolved]
  - Feeling abnormal [Recovered/Resolved]
  - Product substitution issue [Recovered/Resolved]
